FAERS Safety Report 18400131 (Version 1)
Quarter: 2020Q4

REPORT INFORMATION
  Report Type: Spontaneous
  Country: US (occurrence: US)
  Receive Date: 20201019
  Receipt Date: 20201019
  Transmission Date: 20210114
  Serious: No
  Sender: FDA-Public Use
  Company Number: US-ALLERGAN-1943176US

PATIENT
  Sex: Female

DRUGS (2)
  1. VRAYLAR [Suspect]
     Active Substance: CARIPRAZINE
     Indication: MAJOR DEPRESSION
  2. VRAYLAR [Suspect]
     Active Substance: CARIPRAZINE
     Indication: BIPOLAR II DISORDER
     Dosage: 3 MG
     Dates: start: 2019, end: 20191019

REACTIONS (3)
  - Feeling abnormal [Unknown]
  - Therapy interrupted [Unknown]
  - Inability to afford medication [Unknown]
